FAERS Safety Report 9901914 (Version 2)
Quarter: 2014Q1

REPORT INFORMATION
  Report Type: Spontaneous
  Country: ES (occurrence: ES)
  Receive Date: 20140217
  Receipt Date: 20140225
  Transmission Date: 20141002
  Serious: Yes (Hospitalization)
  Sender: FDA-Public Use
  Company Number: ES-GLAXOSMITHKLINE-B0969326A

PATIENT
  Age: 63 Year
  Sex: Female

DRUGS (5)
  1. REVOLADE [Suspect]
     Indication: IMMUNE THROMBOCYTOPENIC PURPURA
     Dosage: 25MG PER DAY
     Route: 048
     Dates: start: 20140110, end: 20140130
  2. TEVETEN [Concomitant]
  3. CRESTOR [Concomitant]
  4. OMEPRAZOLE [Concomitant]
  5. PREDNISONE [Concomitant]
     Dosage: 10MG PER DAY
     Dates: end: 20140130

REACTIONS (1)
  - Pulmonary embolism [Recovering/Resolving]
